FAERS Safety Report 21892581 (Version 3)
Quarter: 2023Q2

REPORT INFORMATION
  Report Type: Report from Study
  Country: FR (occurrence: FR)
  Receive Date: 20230120
  Receipt Date: 20230411
  Transmission Date: 20230721
  Serious: Yes (Other)
  Sender: FDA-Public Use
  Company Number: FR-PFM-2023-00266

PATIENT
  Age: 74 Year
  Sex: Female
  Weight: 62.7 kg

DRUGS (4)
  1. ENCORAFENIB [Suspect]
     Active Substance: ENCORAFENIB
     Indication: Metastatic malignant melanoma
     Dosage: 300 MG, QD (1/DAY)
     Route: 048
     Dates: start: 20220920, end: 20230111
  2. ENCORAFENIB [Suspect]
     Active Substance: ENCORAFENIB
     Dosage: 225 MG
     Dates: start: 20230204
  3. BINIMETINIB [Suspect]
     Active Substance: BINIMETINIB
     Indication: Metastatic malignant melanoma
     Dosage: 30 MG, BID (2/DAY)
     Route: 048
     Dates: start: 20220920, end: 20230111
  4. BINIMETINIB [Suspect]
     Active Substance: BINIMETINIB
     Dosage: 60 MG
     Dates: start: 20230204

REACTIONS (1)
  - Cholestasis [Recovered/Resolved]

NARRATIVE: CASE EVENT DATE: 20230111
